FAERS Safety Report 18447712 (Version 1)
Quarter: 2020Q4

REPORT INFORMATION
  Report Type: Spontaneous
  Country: US (occurrence: US)
  Receive Date: 20201030
  Receipt Date: 20201030
  Transmission Date: 20210114
  Serious: Yes (Life-Threatening, Hospitalization)
  Sender: FDA-Public Use
  Company Number: US-MYLANLABS-2020M1090440

PATIENT
  Age: 65 Year
  Sex: Female

DRUGS (9)
  1. ACETAMINOPHEN. [Suspect]
     Active Substance: ACETAMINOPHEN
     Indication: PRODUCT USED FOR UNKNOWN INDICATION
     Dosage: ADMINISTERED THE NIGHT BEFORE AND THE DAY OF CLINICAL DETERIORATION DURING ENTIRE ADMISSION
     Route: 065
  2. DEXTROSE. [Suspect]
     Active Substance: DEXTROSE
     Indication: HYPERAMMONAEMIC ENCEPHALOPATHY
     Dosage: UNK
     Route: 042
  3. VITAMIN E                          /00110501/ [Suspect]
     Active Substance: TOCOPHEROL
     Indication: DRUG THERAPY
     Dosage: UNK
     Route: 065
  4. LACTULOSE. [Suspect]
     Active Substance: LACTULOSE
     Indication: HYPERAMMONAEMIC ENCEPHALOPATHY
     Dosage: UNK
     Route: 065
  5. ASCORBIC ACID. [Suspect]
     Active Substance: ASCORBIC ACID
     Indication: DRUG THERAPY
     Dosage: UNK
     Route: 065
  6. RIFAXIMIN. [Suspect]
     Active Substance: RIFAXIMIN
     Indication: HYPERAMMONAEMIC ENCEPHALOPATHY
     Dosage: UNK
     Route: 065
  7. SODIUM BICARBONATE. [Suspect]
     Active Substance: SODIUM BICARBONATE
     Indication: DRUG THERAPY
     Dosage: UNK
     Route: 065
  8. MACROGOL 3350 [Suspect]
     Active Substance: POLYETHYLENE GLYCOL 3350
     Indication: HYPERAMMONAEMIC ENCEPHALOPATHY
     Dosage: UNK
     Route: 065
  9. ZINC. [Suspect]
     Active Substance: ZINC
     Indication: MINERAL SUPPLEMENTATION
     Dosage: UNK
     Route: 065

REACTIONS (6)
  - Seizure [Unknown]
  - Hypotension [Unknown]
  - Status epilepticus [Unknown]
  - Metabolic acidosis [Unknown]
  - Drug ineffective [Unknown]
  - Hyperammonaemic encephalopathy [Unknown]
